FAERS Safety Report 12530868 (Version 3)
Quarter: 2017Q2

REPORT INFORMATION
  Report Type: Report from Study
  Country: LT (occurrence: LT)
  Receive Date: 20160706
  Receipt Date: 20170511
  Transmission Date: 20170830
  Serious: Yes (Other)
  Sender: FDA-Public Use
  Company Number: LT-BRISTOL-MYERS SQUIBB COMPANY-BMS-2016-030208

PATIENT
  Age: 26 Year
  Sex: Male

DRUGS (3)
  1. NIVOLUMAB [Suspect]
     Active Substance: NIVOLUMAB
     Indication: NON-SMALL CELL LUNG CANCER
     Dosage: 273 MG, Q2WK
     Route: 042
     Dates: start: 20160315
  2. NIVOLUMAB [Suspect]
     Active Substance: NIVOLUMAB
     Indication: PRODUCT USED FOR UNKNOWN INDICATION
     Dosage: 273 MG, Q3WK
     Route: 042
     Dates: start: 20160315
  3. CIPROFLOXACIN                      /00697202/ [Concomitant]
     Active Substance: CIPROFLOXACIN HYDROCHLORIDE
     Indication: PRODUCT USED FOR UNKNOWN INDICATION
     Route: 065

REACTIONS (4)
  - Tumour excision [Unknown]
  - Oesophageal prosthesis insertion [Unknown]
  - Pyrexia [Recovering/Resolving]
  - Oesophageal obstruction [Recovered/Resolved with Sequelae]

NARRATIVE: CASE EVENT DATE: 20160415
